FAERS Safety Report 23398625 (Version 1)
Quarter: 2024Q1

REPORT INFORMATION
  Report Type: Spontaneous
  Country: US (occurrence: None)
  Receive Date: 20240112
  Receipt Date: 20240112
  Transmission Date: 20240410
  Serious: No
  Sender: FDA-Public Use
  Company Number: None

PATIENT
  Age: 48 Year
  Sex: Female

DRUGS (3)
  1. XELJANZ XR [Suspect]
     Active Substance: TOFACITINIB CITRATE
     Indication: Osteoarthritis
     Dosage: 11MG ONCE DAILY BY MOUTH
     Route: 048
     Dates: start: 202111
  2. OXBRYTA [Concomitant]
     Active Substance: VOXELOTOR
  3. SILDENAFIL CITRATE [Concomitant]
     Active Substance: SILDENAFIL CITRATE
     Indication: Pulmonary arterial hypertension

REACTIONS (2)
  - Adverse event [None]
  - Transfusion [None]

NARRATIVE: CASE EVENT DATE: 20240111
